FAERS Safety Report 14220395 (Version 11)
Quarter: 2019Q1

REPORT INFORMATION
  Report Type: Report from Study
  Country: GB (occurrence: GB)
  Receive Date: 20171124
  Receipt Date: 20190328
  Transmission Date: 20190417
  Serious: Yes (Other)
  Sender: FDA-Public Use
  Company Number: GB-ROCHE-2024883

PATIENT
  Age: 48 Year
  Sex: Female
  Weight: 77.8 kg

DRUGS (33)
  1. OCRELIZUMAB. [Suspect]
     Active Substance: OCRELIZUMAB
     Dosage: OLE-WEEK 120, CYCLE 10
     Route: 042
     Dates: start: 20170323, end: 20170323
  2. METHYLPREDNISOLONE. [Concomitant]
     Active Substance: METHYLPREDNISOLONE
     Dosage: SUBSEQUENT DOSE RECEIVED ON:29/JAN/013, 02/JUL/2013, 17/DEC/2013, 03/JUN/2014,04/DEC/2014, 17/DEC/20
     Route: 065
     Dates: start: 20130116
  3. CHLORPHENAMINE [Concomitant]
     Active Substance: CHLORPHENIRAMINE MALEATE
     Dosage: SUBSEQUENT DOSE RECEIVED ON:29/JAN/013, 02/JUL/2013, 17/DEC/2013, 03/JUN/2014,19/MAY/2015, 03/NOV/20
     Route: 065
     Dates: start: 20130116
  4. PARACETAMOL [Concomitant]
     Active Substance: ACETAMINOPHEN
     Indication: NASOPHARYNGITIS
     Dosage: SUBSEQUENT DOSE RECEIVED ON:29/JAN/013, 02/JUL/2013, 17/DEC/2013, 03/JUN/2014,04/DEC/2014, 17/DEC/20
     Route: 065
     Dates: start: 20130116
  5. MIRENA [Concomitant]
     Active Substance: LEVONORGESTREL
     Indication: CHEMICAL CONTRACEPTION
     Route: 065
     Dates: start: 20121126
  6. OCRELIZUMAB. [Suspect]
     Active Substance: OCRELIZUMAB
     Indication: RELAPSING-REMITTING MULTIPLE SCLEROSIS
     Dosage: DAY 1 CYCLE 5, WEEK 1?600 MG INTRAVENOUS (IV) AS 300 MG INFUSIONS ON DAYS 1 AND 15 FOR THE FIRST DOS
     Route: 042
     Dates: start: 20141204, end: 20141204
  7. OCRELIZUMAB. [Suspect]
     Active Substance: OCRELIZUMAB
     Dosage: DAY 15 CYCLE 5, WEEK 2
     Route: 042
     Dates: start: 20141217, end: 20141217
  8. OCRELIZUMAB. [Suspect]
     Active Substance: OCRELIZUMAB
     Dosage: OLE-WEEK 96, CYCLE 9
     Route: 042
     Dates: start: 20161006, end: 20161006
  9. METHYLPREDNISOLONE. [Concomitant]
     Active Substance: METHYLPREDNISOLONE
     Route: 065
     Dates: start: 20180608, end: 20180608
  10. OCRELIZUMAB. [Suspect]
     Active Substance: OCRELIZUMAB
     Dosage: CYCLE 3 WEEK 48
     Route: 042
     Dates: start: 20131217, end: 20131217
  11. OCRELIZUMAB. [Suspect]
     Active Substance: OCRELIZUMAB
     Dosage: OLE-WEEK 216
     Route: 042
     Dates: start: 20190306, end: 20190306
  12. PARACETAMOL [Concomitant]
     Active Substance: ACETAMINOPHEN
     Indication: PROCEDURAL PAIN
     Route: 065
     Dates: start: 20130918, end: 20130925
  13. IBUPROFEN. [Concomitant]
     Active Substance: IBUPROFEN
     Indication: MUSCULOSKELETAL STIFFNESS
     Route: 065
     Dates: start: 20180601
  14. PLACEBO [Suspect]
     Active Substance: UNSPECIFIED INGREDIENT
     Indication: RELAPSING-REMITTING MULTIPLE SCLEROSIS
     Dosage: LAST DOSE PRIOR TO SAE:03/DEC/2014
     Route: 058
     Dates: start: 20130116
  15. OCRELIZUMAB. [Suspect]
     Active Substance: OCRELIZUMAB
     Dosage: OLE-WEEK 24, CYCLE 6
     Route: 042
     Dates: start: 20150519, end: 20150519
  16. OCRELIZUMAB. [Suspect]
     Active Substance: OCRELIZUMAB
     Dosage: OLE-WEEK 72, CYCLE 8
     Route: 042
     Dates: start: 20160428, end: 20160428
  17. OCRELIZUMAB. [Suspect]
     Active Substance: OCRELIZUMAB
     Dosage: OLE-WEEK 144, CYCLE 11
     Route: 042
     Dates: start: 20170907, end: 20170907
  18. PARACETAMOL [Concomitant]
     Active Substance: ACETAMINOPHEN
     Indication: TOOTHACHE
     Route: 065
     Dates: start: 20140629, end: 20140705
  19. OCRELIZUMAB. [Suspect]
     Active Substance: OCRELIZUMAB
     Dosage: CYCLE 4 WEEK 72
     Route: 042
     Dates: start: 20140603, end: 20140603
  20. DOVOBET [Concomitant]
     Active Substance: BETAMETHASONE\CALCIPOTRIENE
     Indication: PSORIASIS
     Route: 065
     Dates: start: 2011
  21. LEVONORGESTREL. [Concomitant]
     Active Substance: LEVONORGESTREL
     Indication: CHEMICAL CONTRACEPTION
     Route: 065
     Dates: start: 20121126
  22. IBUPROFEN. [Concomitant]
     Active Substance: IBUPROFEN
     Indication: MUSCULOSKELETAL STIFFNESS
     Route: 065
     Dates: start: 20131204
  23. CODEINE PHOSPHATE [Concomitant]
     Active Substance: CODEINE PHOSPHATE
     Indication: PROCEDURAL PAIN
     Route: 065
     Dates: start: 20171114, end: 20171121
  24. OCRELIZUMAB. [Suspect]
     Active Substance: OCRELIZUMAB
     Dosage: OLE-WEEK 48 CYCLE 7
     Route: 042
     Dates: start: 20151103, end: 20151103
  25. IBUPROFEN. [Concomitant]
     Active Substance: IBUPROFEN
     Indication: PAIN
  26. ZOPICLONE [Concomitant]
     Active Substance: ZOPICLONE
     Indication: INSOMNIA
     Route: 065
     Dates: start: 20180607, end: 20180612
  27. OCRELIZUMAB. [Suspect]
     Active Substance: OCRELIZUMAB
     Indication: RELAPSING-REMITTING MULTIPLE SCLEROSIS
     Dosage: DAY 1 CYCLE 1 WEEK 1?DUAL INFUSIONS ON DAYS 1 AND 15 FOR THE FIRST DOSE AND AS A SINGLE INFUSION FOR
     Route: 042
     Dates: start: 20130116, end: 20130116
  28. OCRELIZUMAB. [Suspect]
     Active Substance: OCRELIZUMAB
     Dosage: DAY 15 CYCLE 1 WEEK 2
     Route: 042
     Dates: start: 20130129, end: 20130129
  29. OCRELIZUMAB. [Suspect]
     Active Substance: OCRELIZUMAB
     Dosage: OLE-WEEK 168, CYCLE 12
     Route: 042
     Dates: start: 20180327, end: 20180327
  30. OCRELIZUMAB. [Suspect]
     Active Substance: OCRELIZUMAB
     Dosage: OLE-WEEK 192
     Route: 042
     Dates: start: 20180920, end: 20180920
  31. CHLORPHENIRAMINE MALEATE. [Concomitant]
     Active Substance: CHLORPHENIRAMINE MALEATE
     Dosage: SUBSEQUENT DOSE ON 17/DEC/2014
     Route: 065
     Dates: start: 20141204
  32. PARACETAMOL [Concomitant]
     Active Substance: ACETAMINOPHEN
     Route: 065
     Dates: start: 20171114, end: 20171121
  33. OCRELIZUMAB. [Suspect]
     Active Substance: OCRELIZUMAB
     Dosage: CYCLE 2 WEEK 24
     Route: 042
     Dates: start: 20130702, end: 20130702

REACTIONS (1)
  - Invasive ductal breast carcinoma [Recovered/Resolved]

NARRATIVE: CASE EVENT DATE: 20171027
